FAERS Safety Report 25541924 (Version 1)
Quarter: 2025Q3

REPORT INFORMATION
  Report Type: Spontaneous
  Country: JP (occurrence: JP)
  Receive Date: 20250711
  Receipt Date: 20250711
  Transmission Date: 20251021
  Serious: Yes (Other)
  Sender: TAKEDA
  Company Number: JP-TAKEDA-2025TJP006880

PATIENT
  Age: 7 Decade
  Sex: Male

DRUGS (3)
  1. FRUZAQLA [Suspect]
     Active Substance: FRUQUINTINIB
     Indication: Colon cancer
     Dosage: 5 MILLIGRAM, QD
     Dates: start: 20241206, end: 20241219
  2. FRUZAQLA [Suspect]
     Active Substance: FRUQUINTINIB
     Dates: start: 20250124, end: 20250206
  3. FRUZAQLA [Suspect]
     Active Substance: FRUQUINTINIB
     Dates: start: 20250221, end: 20250313

REACTIONS (4)
  - Platelet count decreased [Recovering/Resolving]
  - Proteinuria [Recovering/Resolving]
  - Metastases to liver [Unknown]
  - Hypertension [Unknown]

NARRATIVE: CASE EVENT DATE: 20241219
